FAERS Safety Report 8614827-3 (Version None)
Quarter: 2012Q3

REPORT INFORMATION
  Report Type: 
  Country: None (occurrence: None)
  Receive Date: 20120823
  Receipt Date: 20120730
  Transmission Date: 20120928
  Serious: No
  Sender: FDA-Public Use
  Company Number: US-009507513-1208USA000062

PATIENT

DRUGS (3)
  1. VICTRELIS [Suspect]
     Indication: HEPATITIS C
     Dosage: 800 MG, TID
     Route: 048
     Dates: start: 20120223
  2. RIBASPHERE [Suspect]
     Indication: HEPATITIS C
  3. PEG-INTRON [Suspect]
     Indication: HEPATITIS C

REACTIONS (3)
  - DYSPNOEA [None]
  - ANAEMIA [None]
  - HYPOTENSION [None]
